FAERS Safety Report 9440381 (Version 1)
Quarter: 2013Q3

REPORT INFORMATION
  Report Type: Spontaneous
  Country: FR (occurrence: FR)
  Receive Date: 20130805
  Receipt Date: 20130805
  Transmission Date: 20140515
  Serious: Yes (Other)
  Sender: FDA-Public Use
  Company Number: FR-TEVA-422092ISR

PATIENT
  Sex: Male

DRUGS (4)
  1. FUROSEMIDE TEVA 40 MG [Suspect]
     Dates: start: 2013, end: 2013
  2. NORMACOL [Concomitant]
  3. LACTULOSE 10 [Concomitant]
     Dosage: 1 DOSAGE FORMS DAILY;
  4. ECONAZOLE TEVA 1% [Concomitant]

REACTIONS (11)
  - Dyspnoea [Unknown]
  - Hypotension [Recovered/Resolved]
  - Liver disorder [Unknown]
  - Asthenia [Unknown]
  - Decreased appetite [Unknown]
  - Weight decreased [Unknown]
  - Vertigo [Recovered/Resolved]
  - Nausea [Recovered/Resolved]
  - Infection [Unknown]
  - Cough [Unknown]
  - Insomnia [Unknown]
